FAERS Safety Report 14425310 (Version 6)
Quarter: 2018Q2

REPORT INFORMATION
  Report Type: Spontaneous
  Country: NL (occurrence: NL)
  Receive Date: 20180123
  Receipt Date: 20180523
  Transmission Date: 20180711
  Serious: Yes (Hospitalization, Disabling, Other)
  Sender: FDA-Public Use
  Company Number: NL-PFIZER INC-2017489194

PATIENT
  Age: 36 Year
  Sex: Male
  Weight: 75 kg

DRUGS (4)
  1. OXYCODON [Concomitant]
     Active Substance: OXYCODONE
     Indication: HEADACHE
     Dosage: 10 MG, 1X/DAY
     Dates: start: 20160603
  2. PARACETAMOL [Concomitant]
     Active Substance: ACETAMINOPHEN
     Indication: BACK PAIN
     Dosage: 1000 MG, 2X/DAY
  3. DEPO-MEDROL [Suspect]
     Active Substance: METHYLPREDNISOLONE ACETATE
     Dosage: 80 MG, SINGLE
     Dates: start: 20160119, end: 20160119
  4. DICLOFENAC [Concomitant]
     Active Substance: DICLOFENAC
     Indication: BACK PAIN
     Dosage: 75 MG, 1X/DAY
     Dates: start: 20150119

REACTIONS (11)
  - Burning sensation [Recovering/Resolving]
  - Muscle tightness [Recovering/Resolving]
  - Speech disorder [Recovering/Resolving]
  - Hypokinesia [Recovering/Resolving]
  - Tremor [Recovering/Resolving]
  - Disturbance in attention [Recovering/Resolving]
  - Memory impairment [Recovering/Resolving]
  - Gait inability [Recovering/Resolving]
  - Off label use [Unknown]
  - Cerebrospinal fluid leakage [Recovering/Resolving]
  - Confusional state [Recovering/Resolving]

NARRATIVE: CASE EVENT DATE: 20160119
